FAERS Safety Report 6371785-2 (Version None)
Quarter: 2009Q3

REPORT INFORMATION
  Report Type: 
  Country: None (occurrence: None)
  Receive Date: 20090923
  Receipt Date: 20090923
  Transmission Date: 20100115
  Serious: No
  Sender: FDA-Public Use
  Company Number: US-ROXANE LABORATORIES, INC.-2009-RO-00837RO

PATIENT
  Sex: Male

DRUGS (1)
  1. FLUTICASONE [Suspect]
     Indication: SEASONAL ALLERGY
     Route: 045
     Dates: start: 20090701

REACTIONS (1)
  - DRUG INEFFECTIVE [None]
